FAERS Safety Report 5232123-1 (Version None)
Quarter: 2007Q1

REPORT INFORMATION
  Report Type: 
  Country: None (occurrence: None)
  Receive Date: 20061201
  Receipt Date: 20060830
  Transmission Date: 20070707
  Serious: No
  Sender: FDA-Public Use
  Company Number: US200608006911

PATIENT
  Age: 44 Year
  Sex: Female

DRUGS (3)
  1. CYMBALTA [Suspect]
     Indication: PAIN
     Dosage: 30 MG
     Dates: start: 20050101
  2. METHOCARBAMOL [Concomitant]
  3. AMITRIPTYLINE HCL [Concomitant]

REACTIONS (1)
  - BLOOD GLUCOSE INCREASED [None]
